FAERS Safety Report 26191684 (Version 1)
Quarter: 2025Q4

REPORT INFORMATION
  Report Type: Spontaneous
  Country: US (occurrence: US)
  Receive Date: 20251223
  Receipt Date: 20251223
  Transmission Date: 20260118
  Serious: No
  Sender: TEVA
  Company Number: US-TEVA-VS-3403541

PATIENT
  Sex: Male

DRUGS (2)
  1. UZEDY [Suspect]
     Active Substance: RISPERIDONE
     Indication: Product used for unknown indication
     Route: 065
     Dates: start: 20251205
  2. Haldol. [Concomitant]
     Indication: Product used for unknown indication

REACTIONS (2)
  - Mania [Unknown]
  - Malaise [Unknown]

NARRATIVE: CASE EVENT DATE: 20251201
